FAERS Safety Report 7085370-0 (Version None)
Quarter: 2010Q4

REPORT INFORMATION
  Report Type: 
  Country: None (occurrence: None)
  Receive Date: 20101105
  Receipt Date: 20101027
  Transmission Date: 20110411
  Serious: Yes (Death, Hospitalization)
  Sender: FDA-Public Use
  Company Number: PHHY2010DE70658

PATIENT
  Age: 59 Year
  Weight: 66 kg

DRUGS (6)
  1. ZOLEDRONATE T29581+ [Suspect]
     Indication: BONE DISORDER
     Dosage: UNK
     Route: 042
     Dates: start: 20091202, end: 20100226
  2. MST [Concomitant]
     Indication: PAIN
     Dosage: 80 MG /DAY
     Route: 048
     Dates: start: 20100817, end: 20100917
  3. METOPROLOL [Concomitant]
     Indication: HYPERTENSION
     Dosage: 100 MG/DAY
     Route: 048
     Dates: end: 20100917
  4. PANTOPRAZOLE SODIUM [Concomitant]
     Indication: ANTACID THERAPY
     Dosage: 40 MG/ DAY
     Route: 048
     Dates: start: 20091006, end: 20100917
  5. DEXAMETHASONE [Concomitant]
     Indication: CENTRAL VENOUS PRESSURE ABNORMAL
     Dosage: 6MG/DAY
     Route: 048
     Dates: start: 20100713, end: 20100917
  6. FURORESE [Concomitant]
     Dosage: 40 MG/ DAY
     Route: 048
     Dates: end: 20100917

REACTIONS (5)
  - MALIGNANT NEOPLASM PROGRESSION [None]
  - METASTASES TO CENTRAL NERVOUS SYSTEM [None]
  - NEUROLOGICAL SYMPTOM [None]
  - OSTEONECROSIS OF JAW [None]
  - SURGERY [None]
